FAERS Safety Report 10240910 (Version 2)
Quarter: 2014Q3

REPORT INFORMATION
  Report Type: Spontaneous
  Country: GB (occurrence: GB)
  Receive Date: 20140617
  Receipt Date: 20140714
  Transmission Date: 20150326
  Serious: No
  Sender: FDA-Public Use
  Company Number: GB-JNJFOC-20140601248

PATIENT
  Sex: Male

DRUGS (2)
  1. DURAGESIC [Suspect]
     Active Substance: FENTANYL
     Indication: PRODUCT USED FOR UNKNOWN INDICATION
  2. DURAGESIC [Suspect]
     Active Substance: FENTANYL
     Indication: PRODUCT USED FOR UNKNOWN INDICATION

REACTIONS (4)
  - Hyperhidrosis [Unknown]
  - Wrong technique in drug usage process [Unknown]
  - Product adhesion issue [Unknown]
  - Drug withdrawal syndrome [Unknown]
